FAERS Safety Report 7953862-5 (Version None)
Quarter: 2011Q4

REPORT INFORMATION
  Report Type: 
  Country: None (occurrence: None)
  Receive Date: 20111202
  Receipt Date: 20111201
  Transmission Date: 20120403
  Serious: No
  Sender: FDA-Public Use
  Company Number: US-PFIZER INC-2011063380

PATIENT
  Sex: Female

DRUGS (2)
  1. ALTACE [Suspect]
     Dosage: UNK
  2. LISINOPRIL [Suspect]
     Indication: BLOOD PRESSURE
     Dosage: UNK

REACTIONS (3)
  - DRUG INEFFECTIVE [None]
  - COUGH [None]
  - FATIGUE [None]
